FAERS Safety Report 6245637-2 (Version None)
Quarter: 2009Q2

REPORT INFORMATION
  Report Type: 
  Country: None (occurrence: None)
  Receive Date: 20090625
  Receipt Date: 20090429
  Transmission Date: 20091009
  Serious: No
  Sender: FDA-Public Use
  Company Number: US-ASTRAZENECA-2008UW26187

PATIENT
  Age: 73 Year
  Sex: Male
  Weight: 73.9 kg

DRUGS (6)
  1. ZOLADEX [Suspect]
     Indication: PROSTATIC SPECIFIC ANTIGEN
     Route: 058
     Dates: start: 20080722
  2. XALATAN [Concomitant]
     Indication: GLAUCOMA
  3. SYNTHROID [Concomitant]
  4. MAXZIDE [Concomitant]
  5. COSOPT EYE DROPS [Concomitant]
  6. VITAMINS [Concomitant]

REACTIONS (10)
  - ABDOMINAL DISCOMFORT [None]
  - ABDOMINAL PAIN [None]
  - DIARRHOEA [None]
  - FATIGUE [None]
  - GASTRIC DISORDER [None]
  - GASTROENTERITIS VIRAL [None]
  - HOT FLUSH [None]
  - HYPERSOMNIA [None]
  - INJECTION SITE HYPERSENSITIVITY [None]
  - NAUSEA [None]
